FAERS Safety Report 5292264-X (Version None)
Quarter: 2007Q2

REPORT INFORMATION
  Report Type: 
  Country: None (occurrence: None)
  Receive Date: 20070410
  Receipt Date: 20070329
  Transmission Date: 20071010
  Serious: Yes (Life-Threatening)
  Sender: FDA-Public Use
  Company Number: AU-SANOFI-SYNTHELABO-A01200703405

PATIENT
  Age: 44 Year
  Sex: Female

DRUGS (1)
  1. STILNOX CR [Suspect]
     Indication: DRUG USE FOR UNKNOWN INDICATION
     Route: 048
     Dates: start: 20070125, end: 20070207

REACTIONS (3)
  - AMNESIA [None]
  - SCHIZOPHRENIFORM DISORDER [None]
  - SLEEP WALKING [None]
